FAERS Safety Report 18347552 (Version 1)
Quarter: 2020Q4

REPORT INFORMATION
  Report Type: Spontaneous
  Country: FR (occurrence: FR)
  Receive Date: 20201006
  Receipt Date: 20201006
  Transmission Date: 20210114
  Serious: Yes (Hospitalization)
  Sender: FDA-Public Use
  Company Number: FR-SUN PHARMACEUTICAL INDUSTRIES LTD-2020RR-263355

PATIENT
  Age: 88 Year
  Sex: Female
  Weight: 82 kg

DRUGS (5)
  1. MIANSERINE (CHLORHYDRATE DE) [Suspect]
     Active Substance: MIANSERIN HYDROCHLORIDE
     Indication: MEDICATION ERROR
     Dosage: 90 MILLIGRAM, UNK
     Route: 048
     Dates: start: 20200906, end: 20200906
  2. PARACETAMOL [Suspect]
     Active Substance: ACETAMINOPHEN
     Indication: MEDICATION ERROR
     Dosage: 1 GRAM, UNK
     Route: 048
     Dates: start: 20200906, end: 20200906
  3. SERESTA 50 MG, COMPRIME SECABLE [Suspect]
     Active Substance: OXAZEPAM
     Indication: MEDICATION ERROR
     Dosage: 50 MILLIGRAM, UNK
     Route: 048
     Dates: start: 20200906, end: 20200906
  4. GABAPENTINE [Suspect]
     Active Substance: GABAPENTIN
     Indication: MEDICATION ERROR
     Dosage: 300 MILLIGRAM, UNK
     Route: 048
     Dates: start: 20200906, end: 20200906
  5. TIAPRIDE (CHLORHYDRATE DE) [Suspect]
     Active Substance: TIAPRIDE HYDROCHLORIDE
     Indication: MEDICATION ERROR
     Dosage: 150 MILLIGRAM, UNK
     Route: 048
     Dates: start: 20200906, end: 20200906

REACTIONS (3)
  - Wrong patient received product [Recovered/Resolved]
  - Confusional state [Recovering/Resolving]
  - Pneumonia aspiration [Recovering/Resolving]

NARRATIVE: CASE EVENT DATE: 20200906
